FAERS Safety Report 7787110-6 (Version None)
Quarter: 2011Q3

REPORT INFORMATION
  Report Type: 
  Country: None (occurrence: None)
  Receive Date: 20110929
  Receipt Date: 20110920
  Transmission Date: 20111222
  Serious: Yes (Hospitalization)
  Sender: FDA-Public Use
  Company Number: CN-ABBOTT-11P-035-0856397-00

PATIENT
  Age: 22 Year
  Sex: Female

DRUGS (7)
  1. RISPERIDONE [Suspect]
     Indication: SCHIZOPHRENIA
     Dosage: DAILY
     Route: 048
     Dates: start: 20091111, end: 20091114
  2. HALOPERIDOL [Concomitant]
     Indication: PRODUCT USED FOR UNKNOWN INDICATION
     Dates: start: 20091107, end: 20091111
  3. TRIHEXYPHENIDYL HCL [Concomitant]
     Indication: PRODUCT USED FOR UNKNOWN INDICATION
     Dates: start: 20091107, end: 20091111
  4. DEPAKENE [Suspect]
     Indication: AFFECTIVE DISORDER
     Dosage: DAILY
     Route: 048
     Dates: start: 20091102, end: 20091114
  5. DEPAKENE [Suspect]
     Indication: SCHIZOPHRENIA
     Dosage: DAILY
     Route: 048
     Dates: start: 20091115
  6. RISPERIDONE [Suspect]
     Indication: AFFECTIVE DISORDER
     Dosage: DAILY
     Route: 048
     Dates: start: 20091102, end: 20091110
  7. RISPERIDONE [Suspect]
     Dosage: DAILY
     Route: 048
     Dates: start: 20091115

REACTIONS (6)
  - LOSS OF CONSCIOUSNESS [None]
  - HYPERTONIA [None]
  - URINARY INCONTINENCE [None]
  - HEART SOUNDS ABNORMAL [None]
  - COMA [None]
  - PUPILLARY REFLEX IMPAIRED [None]
